FAERS Safety Report 6877000-5 (Version None)
Quarter: 2010Q3

REPORT INFORMATION
  Report Type: 
  Country: None (occurrence: None)
  Receive Date: 20100727
  Receipt Date: 20100715
  Transmission Date: 20110219
  Serious: Yes (Hospitalization)
  Sender: FDA-Public Use
  Company Number: DK-ASTRAZENECA-2010SE33298

PATIENT
  Age: 23627 Day
  Sex: Male

DRUGS (6)
  1. ATACAND [Suspect]
     Route: 048
  2. NORVASC [Suspect]
     Route: 048
  3. METOPROLOL [Concomitant]
     Dates: start: 20000317
  4. SIMVASTATIN [Concomitant]
     Dates: start: 20020823
  5. GLYCERYL TRINITRATE [Concomitant]
     Dates: start: 20000401
  6. ACETYLSALICYLIC ACID SRT [Concomitant]
     Dates: start: 20000315

REACTIONS (2)
  - HYPERSENSITIVITY [None]
  - SWOLLEN TONGUE [None]
